FAERS Safety Report 5857874-7 (Version None)
Quarter: 2008Q3

REPORT INFORMATION
  Report Type: 
  Country: None (occurrence: None)
  Receive Date: 20080825
  Receipt Date: 20080825
  Transmission Date: 20090109
  Serious: No
  Sender: FDA-Public Use
  Company Number: None

PATIENT
  Age: 34 Year
  Sex: Male
  Weight: 59.8748 kg

DRUGS (1)
  1. LYRICA [Suspect]
     Indication: OSTEONECROSIS
     Dosage: 25MG 2XDAILY PO
     Route: 048
     Dates: start: 20080822, end: 20080822

REACTIONS (5)
  - AMNESIA [None]
  - ANXIETY [None]
  - DIZZINESS [None]
  - MOTOR DYSFUNCTION [None]
  - SUICIDAL IDEATION [None]
